FAERS Safety Report 14530991 (Version 1)
Quarter: 2018Q1

REPORT INFORMATION
  Report Type: Other
  Country: None (occurrence: US)
  Receive Date: 20180214
  Receipt Date: 20180214
  Transmission Date: 20180509
  Serious: Yes (Other)
  Sender: FDA-Public Use
  Company Number: US-GUTHY-RENKER, LLC-2041957

PATIENT
  Sex: Female

DRUGS (2)
  1. UNDISCLOSED MEDICATIONS TAKEN AS NEEDED [Concomitant]
  2. MEANINGFUL BEAUTY CINDY CRAWFORD ANTIOXIDANT SPF 20 UVA/UVB [Suspect]
     Active Substance: AVOBENZONE\OCTINOXATE\OCTISALATE\OXYBENZONE
     Indication: PROPHYLAXIS AGAINST SOLAR RADIATION
     Route: 061
     Dates: start: 20170303, end: 20170306

REACTIONS (3)
  - Rash [None]
  - Swelling face [Recovered/Resolved]
  - Eye swelling [None]

NARRATIVE: CASE EVENT DATE: 20170306
